FAERS Safety Report 7020444-1 (Version None)
Quarter: 2010Q3

REPORT INFORMATION
  Report Type: 
  Country: None (occurrence: None)
  Receive Date: 20100929
  Receipt Date: 20100920
  Transmission Date: 20110219
  Serious: Yes (Other)
  Sender: FDA-Public Use
  Company Number: FR-ASTRAZENECA-2010SE44392

PATIENT
  Age: 89 Year
  Sex: Female

DRUGS (5)
  1. NEXIUM [Suspect]
     Route: 048
     Dates: start: 20100712
  2. PERFALGAN [Suspect]
     Route: 042
     Dates: start: 20100712, end: 20100720
  3. FLAGYL [Suspect]
     Route: 042
     Dates: start: 20100627, end: 20100715
  4. ROCEPHIN [Suspect]
     Route: 042
     Dates: start: 20100629, end: 20100715
  5. LASIX [Concomitant]
     Route: 048
     Dates: start: 20100712, end: 20100712

REACTIONS (1)
  - TOXIC SKIN ERUPTION [None]
